FAERS Safety Report 5115435-1 (Version None)
Quarter: 2006Q3

REPORT INFORMATION
  Report Type: 
  Country: None (occurrence: None)
  Receive Date: 20060922
  Receipt Date: 20060915
  Transmission Date: 20061208
  Serious: Yes (Hospitalization)
  Sender: FDA-Public Use
  Company Number: 2006111899

PATIENT
  Age: 60 Year
  Sex: Male

DRUGS (4)
  1. TAHOR (ATORVASTATIN) [Suspect]
     Dosage: 40 MG
  2. HERBAL PREPARATION (HERBAL PREPARATION) [Suspect]
  3. ASPIRIN [Concomitant]
  4. DRUG, UNSPECIFIED [Concomitant]

REACTIONS (5)
  - BLOOD CREATINE PHOSPHOKINASE INCREASED [None]
  - BLOOD POTASSIUM DECREASED [None]
  - OEDEMA PERIPHERAL [None]
  - PARAESTHESIA [None]
  - POISONING [None]
